FAERS Safety Report 5309095-4 (Version None)
Quarter: 2007Q2

REPORT INFORMATION
  Report Type: 
  Country: None (occurrence: None)
  Receive Date: 20070426
  Receipt Date: 20070420
  Transmission Date: 20071010
  Serious: Yes (Disabling)
  Sender: FDA-Public Use
  Company Number: US-MERCK-0703USA03016

PATIENT
  Age: 77 Year
  Sex: Female

DRUGS (3)
  1. ZETIA [Suspect]
     Indication: BLOOD CHOLESTEROL INCREASED
     Route: 048
     Dates: end: 20061101
  2. ZETIA [Suspect]
     Route: 048
     Dates: start: 20060101, end: 20060101
  3. PROZAC [Concomitant]
     Route: 065
     Dates: end: 20060101

REACTIONS (11)
  - ASTHENIA [None]
  - BACK PAIN [None]
  - CHOLECYSTITIS [None]
  - FEELING HOT [None]
  - GAIT DISTURBANCE [None]
  - GALLBLADDER DISORDER [None]
  - JOINT LOCK [None]
  - MALAISE [None]
  - PARANASAL SINUS HYPERSECRETION [None]
  - SYNCOPE [None]
  - VOMITING [None]
